FAERS Safety Report 14700793 (Version 3)
Quarter: 2025Q1

REPORT INFORMATION
  Report Type: Report from Study
  Country: DE (occurrence: DE)
  Receive Date: 20180330
  Receipt Date: 20250303
  Transmission Date: 20250409
  Serious: Yes (Life-Threatening, Other)
  Sender: AMGEN
  Company Number: DE-AMGEN-DEUNI2018042426

PATIENT
  Sex: Female

DRUGS (17)
  1. CARFILZOMIB [Suspect]
     Active Substance: CARFILZOMIB
     Indication: Plasma cell myeloma
     Route: 042
     Dates: start: 20171222, end: 20180209
  2. LENALIDOMIDE [Concomitant]
     Active Substance: LENALIDOMIDE
     Route: 065
     Dates: start: 20171222, end: 20180201
  3. LENALIDOMIDE [Concomitant]
     Active Substance: LENALIDOMIDE
     Route: 065
     Dates: start: 20180202, end: 20180215
  4. DEXAMETHASONE [Concomitant]
     Active Substance: DEXAMETHASONE
     Route: 065
     Dates: start: 20171222, end: 20180209
  5. SULFAMETHOXAZOLE\TRIMETHOPRIM [Concomitant]
     Active Substance: SULFAMETHOXAZOLE\TRIMETHOPRIM
     Indication: Prophylaxis
     Route: 065
     Dates: start: 20150504, end: 20220322
  6. PANTOPRAZOLE SODIUM [Concomitant]
     Active Substance: PANTOPRAZOLE SODIUM
     Indication: Prophylaxis
     Dosage: 40 MILLIGRAM, QD (40 MG DAILY)
     Route: 065
     Dates: start: 20151104
  7. ACYCLOVIR [Concomitant]
     Active Substance: ACYCLOVIR
     Indication: Prophylaxis
     Dosage: 400 MILLIGRAM, QD (DAILY)
     Route: 065
     Dates: start: 20150504, end: 20220322
  8. PAMIDRONATE DISODIUM [Concomitant]
     Active Substance: PAMIDRONATE DISODIUM
     Indication: Prophylaxis
     Dosage: 60 MILLIGRAM, QMO
     Route: 065
     Dates: start: 201208
  9. TORSEMIDE [Concomitant]
     Active Substance: TORSEMIDE
     Indication: Prophylaxis
     Dosage: 10 MILLIGRAM, QD (DAILY)
     Route: 065
     Dates: start: 20240419
  10. METAMIZOLE [Concomitant]
     Active Substance: METAMIZOLE
     Indication: Osteolysis
  11. ELIQUIS [Concomitant]
     Active Substance: APIXABAN
     Indication: Prophylaxis
     Dosage: 2.5 MILLIGRAM, QD (DAILY)
     Route: 065
     Dates: start: 20240420
  12. XARELTO [Concomitant]
     Active Substance: RIVAROXABAN
     Indication: Prophylaxis
     Dosage: 20 MILLIGRAM, QD (DAILY)
     Route: 065
     Dates: start: 20180317, end: 20240419
  13. Delix [Concomitant]
     Indication: Hypertension
     Dosage: 2.5 MILLIGRAM, QD
     Dates: start: 20180402
  14. ENOXAPARIN SODIUM [Concomitant]
     Active Substance: ENOXAPARIN SODIUM
     Indication: Prophylaxis
     Dosage: 0.8 MILLILITER, QD (DAILY)
     Dates: start: 20171207, end: 2018
  15. NALOXONE HYDROCHLORIDE\TILIDINE HYDROCHLORIDE [Concomitant]
     Active Substance: NALOXONE HYDROCHLORIDE\TILIDINE HYDROCHLORIDE
     Indication: Osteolysis
     Dosage: 50 MILLIGRAM, QD (DAILY)
     Route: 065
     Dates: start: 20160915, end: 20171227
  16. LYRICA [Concomitant]
     Active Substance: PREGABALIN
     Indication: Neuralgia
     Dosage: 25 MILLIGRAM, QD (DAILY)
     Route: 065
     Dates: start: 20150505
  17. NITROXOLINE [Concomitant]
     Active Substance: NITROXOLINE
     Indication: Prophylaxis
     Dosage: 250 MILLIGRAM, QD (DAILY)
     Route: 065
     Dates: start: 20151019

REACTIONS (2)
  - Pulmonary embolism [Recovered/Resolved]
  - Muscle spasms [Recovered/Resolved]

NARRATIVE: CASE EVENT DATE: 20180202
